FAERS Safety Report 5760224-8 (Version None)
Quarter: 2008Q2

REPORT INFORMATION
  Report Type: 
  Country: None (occurrence: None)
  Receive Date: 20080602
  Receipt Date: 20080522
  Transmission Date: 20081010
  Serious: Yes (Other)
  Sender: FDA-Public Use
  Company Number: 2008SP010031

PATIENT
  Age: 33 Year
  Sex: Male

DRUGS (2)
  1. RIBAVIRIN [Suspect]
     Indication: HEPATITIS C
     Dosage: 800 MG;QD;PO
     Route: 048
  2. INTERFERON ALFA [Suspect]
     Indication: HEPATITIS C
     Dosage: TIW; SC
     Route: 058

REACTIONS (6)
  - HEADACHE [None]
  - PAPILLOEDEMA [None]
  - RETINAL HAEMORRHAGE [None]
  - RETINOPATHY [None]
  - SUDDEN VISUAL LOSS [None]
  - VISUAL ACUITY REDUCED [None]
